FAERS Safety Report 6295016-7 (Version None)
Quarter: 2009Q3

REPORT INFORMATION
  Report Type: 
  Country: None (occurrence: None)
  Receive Date: 20090731
  Receipt Date: 20090731
  Transmission Date: 20100115
  Serious: Yes (Hospitalization, Other)
  Sender: FDA-Public Use
  Company Number: None

PATIENT
  Sex: Male
  Weight: 74.8435 kg

DRUGS (2)
  1. PEG-INTRON 150 MCG/0.5ML - 1 SYRINGE SCHERING [Suspect]
     Indication: HEPATITIS
     Dosage: 150 MCG/ 035ML WEEKLY SQ
     Route: 058
     Dates: start: 20090706, end: 20090806
  2. RIBAVIRIN [Suspect]
     Indication: HEPATITIS C
     Dosage: 200 MG 3 TABS AM/4 TABSPM PO
     Route: 048
     Dates: start: 20090706, end: 20090706

REACTIONS (8)
  - BLOOD GLUCOSE INCREASED [None]
  - COLITIS [None]
  - DYSPNOEA [None]
  - HAEMORRHAGE [None]
  - POLYURIA [None]
  - PYREXIA [None]
  - THIRST [None]
  - WEIGHT DECREASED [None]
